FAERS Safety Report 8360599-X (Version None)
Quarter: 2012Q2

REPORT INFORMATION
  Report Type: 
  Country: None (occurrence: None)
  Receive Date: 20120514
  Receipt Date: 20120514
  Transmission Date: 20120825
  Serious: No
  Sender: FDA-Public Use
  Company Number: None

PATIENT
  Age: 72 Year
  Sex: Female
  Weight: 55.3388 kg

DRUGS (1)
  1. TOPIRAMATE [Suspect]
     Indication: MIGRAINE
     Dosage: 25MG TAB 2 DAILY MOUTH
     Route: 048
     Dates: start: 20120315

REACTIONS (3)
  - ONYCHOCLASIS [None]
  - TRICHORRHEXIS [None]
  - DISTURBANCE IN ATTENTION [None]
